FAERS Safety Report 4668623-2 (Version None)
Quarter: 2005Q2

REPORT INFORMATION
  Report Type: 
  Country: None (occurrence: None)
  Receive Date: 20050519
  Receipt Date: 20050505
  Transmission Date: 20051028
  Serious: Yes (Hospitalization, Other)
  Sender: FDA-Public Use
  Company Number: 18238

PATIENT
  Age: 75 Year
  Sex: Male

DRUGS (1)
  1. DACARBAZINE [Suspect]
     Indication: MALIGNANT MELANOMA
     Dosage: 1860 MG
     Dates: start: 20020313

REACTIONS (2)
  - ABDOMINAL PAIN UPPER [None]
  - JAUNDICE [None]
